FAERS Safety Report 4587205-4 (Version None)
Quarter: 2005Q1

REPORT INFORMATION
  Report Type: 
  Country: None (occurrence: None)
  Receive Date: 20050218
  Receipt Date: 20040730
  Transmission Date: 20050727
  Serious: Yes (Death)
  Sender: FDA-Public Use
  Company Number: US-GLAXOSMITHKLINE-A0521203A

PATIENT
  Age: 23 Year
  Sex: Female
  Weight: 60.5 kg

DRUGS (4)
  1. PAXIL CR [Suspect]
     Indication: DEPRESSION
     Dosage: 12.5MG PER DAY
     Route: 048
     Dates: start: 20030227
  2. AMOXICILLIN [Concomitant]
     Route: 048
  3. ALLEGRA [Concomitant]
  4. IMITREX [Concomitant]
     Indication: MIGRAINE

REACTIONS (11)
  - BRAIN OEDEMA [None]
  - COMA [None]
  - COMPLETED SUICIDE [None]
  - DEPRESSED LEVEL OF CONSCIOUSNESS [None]
  - EAR CONGESTION [None]
  - HEPATIC CONGESTION [None]
  - POISONING [None]
  - PULMONARY CONGESTION [None]
  - PULMONARY OEDEMA [None]
  - RENAL DISORDER [None]
  - SPLEEN CONGESTION [None]
